FAERS Safety Report 4353622-0 (Version None)
Quarter: 2004Q2

REPORT INFORMATION
  Report Type: 
  Country: None (occurrence: None)
  Receive Date: 20040430
  Receipt Date: 20040419
  Transmission Date: 20050107
  Serious: Yes (Other)
  Sender: FDA-Public Use
  Company Number: ZONI001373

PATIENT
  Age: 21 Year
  Sex: Female
  Weight: 65.318 kg

DRUGS (3)
  1. ZONEGRAN [Suspect]
     Indication: EPILEPSY
     Dosage: 200 MG DAILY ORAL
     Route: 048
     Dates: start: 20010401
  2. FOLIC ACID [Concomitant]
  3. VITAMINS NOS (VITAMINS NOS) [Concomitant]

REACTIONS (5)
  - CAESAREAN SECTION [None]
  - DRUG EXPOSURE DURING PREGNANCY [None]
  - FOETAL MALPRESENTATION [None]
  - PREMATURE BABY [None]
  - TWIN PREGNANCY [None]
